FAERS Safety Report 12467223 (Version 1)
Quarter: 2016Q2

REPORT INFORMATION
  Report Type: Spontaneous
  Country: GB (occurrence: GB)
  Receive Date: 20160615
  Receipt Date: 20160615
  Transmission Date: 20160815
  Serious: Yes (Death, Other)
  Sender: FDA-Public Use
  Company Number: GB-TEVA-666581ACC

PATIENT
  Age: 16 Year
  Sex: Female
  Weight: 20 kg

DRUGS (8)
  1. DICLOFENAC [Suspect]
     Active Substance: DICLOFENAC
     Indication: ANALGESIC THERAPY
     Dosage: 50 MILLIGRAM DAILY;
     Route: 054
     Dates: start: 20150203, end: 20160311
  2. PARACETAMOL [Concomitant]
     Active Substance: ACETAMINOPHEN
  3. HYOSCINE [Concomitant]
     Active Substance: SCOPOLAMINE
  4. DICLOFENAC [Suspect]
     Active Substance: DICLOFENAC
     Indication: ANALGESIC THERAPY
     Dosage: 25MG IN THE MORNING 12.5MG MIDDAY, 12.5MG NOCTE
     Route: 054
     Dates: start: 20150202, end: 20160211
  5. BACLOFEN. [Concomitant]
     Active Substance: BACLOFEN
  6. BUCCOLAM [Concomitant]
     Active Substance: MIDAZOLAM HYDROCHLORIDE
  7. SODIUM VALPROATE [Concomitant]
     Active Substance: VALPROATE SODIUM
  8. MOVICOL [Concomitant]
     Active Substance: POLYETHYLENE GLYCOL 3350\POTASSIUM CHLORIDE\SODIUM BICARBONATE\SODIUM CHLORIDE

REACTIONS (3)
  - Gastric ulcer perforation [Fatal]
  - Peritonitis [Not Recovered/Not Resolved]
  - Abdominal pain [Unknown]

NARRATIVE: CASE EVENT DATE: 20160310
